FAERS Safety Report 17571235 (Version 1)
Quarter: 2020Q1

REPORT INFORMATION
  Report Type: Spontaneous
  Country: US (occurrence: US)
  Receive Date: 20200317
  Receipt Date: 20200317
  Transmission Date: 20200409
  Serious: No
  Sender: FDA-Public Use
  Company Number: None

PATIENT
  Age: 58 Year
  Sex: Male

DRUGS (2)
  1. AFINITOR [Suspect]
     Active Substance: EVEROLIMUS
     Route: 048
     Dates: start: 20190420
  2. APTIOM [Concomitant]
     Active Substance: ESLICARBAZEPINE ACETATE

REACTIONS (2)
  - Stomatitis [None]
  - Anxiety [None]

NARRATIVE: CASE EVENT DATE: 20200317
